FAERS Safety Report 7393787-X (Version None)
Quarter: 2011Q2

REPORT INFORMATION
  Report Type: 
  Country: None (occurrence: None)
  Receive Date: 20110405
  Receipt Date: 20110324
  Transmission Date: 20111010
  Serious: Yes (Hospitalization)
  Sender: FDA-Public Use
  Company Number: FR-ELI_LILLY_AND_COMPANY-FR201103006968

PATIENT
  Age: 52 Year
  Sex: Male

DRUGS (3)
  1. TRANXENE [Concomitant]
     Indication: BIPOLAR DISORDER
     Dosage: 10 MG, QD IF NEEDED
     Route: 048
  2. ZYPADHERA [Suspect]
     Indication: BIPOLAR DISORDER
     Dosage: 405 MG, 4/W
     Route: 030
  3. DEPAKOTE [Concomitant]
     Dosage: 1500 MG, QD
     Route: 048

REACTIONS (5)
  - DYSARTHRIA [None]
  - RESTLESS LEGS SYNDROME [None]
  - CONFUSIONAL STATE [None]
  - AGITATION [None]
  - DYSKINESIA [None]
